FAERS Safety Report 25867214 (Version 1)
Quarter: 2025Q4

REPORT INFORMATION
  Report Type: Spontaneous
  Country: EU (occurrence: EU)
  Receive Date: 20251001
  Receipt Date: 20251001
  Transmission Date: 20260118
  Serious: Yes (Hospitalization, Other)
  Sender: JOHNSON AND JOHNSON
  Company Number: EU-JNJFOC-20250932772

PATIENT
  Age: 58 Year
  Sex: Male

DRUGS (10)
  1. BALVERSA [Suspect]
     Active Substance: ERDAFITINIB
     Indication: Bladder cancer
     Route: 065
     Dates: start: 20190319
  2. BALVERSA [Suspect]
     Active Substance: ERDAFITINIB
     Route: 065
  3. BALVERSA [Suspect]
     Active Substance: ERDAFITINIB
     Route: 065
     Dates: start: 20190919
  4. TOUJEO [Concomitant]
     Active Substance: INSULIN GLARGINE
     Indication: Product used for unknown indication
     Dosage: 12 UNITS NOCTE
  5. METFORMIN HYDROCHLORIDE [Concomitant]
     Active Substance: METFORMIN HYDROCHLORIDE
     Indication: Product used for unknown indication
     Dosage: IN 1 G BD
  6. GLICLAZIDE [Concomitant]
     Active Substance: GLICLAZIDE
     Indication: Product used for unknown indication
     Dosage: 120MG DAILY
  7. LINAGLIPTIN [Concomitant]
     Active Substance: LINAGLIPTIN
     Indication: Product used for unknown indication
     Dosage: 5MG DAILY
  8. ASPIRIN [Concomitant]
     Active Substance: ASPIRIN
     Indication: Product used for unknown indication
     Dosage: 75MG DAILY
  9. PERINDOPRIL [Concomitant]
     Active Substance: PERINDOPRIL
     Indication: Product used for unknown indication
     Dosage: 10MG DAILY
  10. PRAVASTATIN [Concomitant]
     Active Substance: PRAVASTATIN
     Indication: Product used for unknown indication
     Dosage: 40MG DAILY

REACTIONS (9)
  - Sepsis [Unknown]
  - Fatigue [Unknown]
  - Neuropathy peripheral [Unknown]
  - Renal impairment [Unknown]
  - Nephrostomy [Unknown]
  - Mucosal inflammation [Unknown]
  - Treatment noncompliance [Unknown]
  - Eye infection [Unknown]
  - Nail disorder [Unknown]

NARRATIVE: CASE EVENT DATE: 20190919
